FAERS Safety Report 13891551 (Version 5)
Quarter: 2017Q4

REPORT INFORMATION
  Report Type: Spontaneous
  Country: CA (occurrence: CA)
  Receive Date: 20170822
  Receipt Date: 20171213
  Transmission Date: 20180320
  Serious: Yes (Other)
  Sender: FDA-Public Use
  Company Number: CA-CELLTRION HEALTHCARE HUNGARY KFT-2017CA009441

PATIENT

DRUGS (5)
  1. MEZAVANT [Concomitant]
     Active Substance: MESALAMINE
     Dosage: 2 G, BID
     Route: 048
     Dates: start: 2016
  2. PREDNISONE. [Concomitant]
     Active Substance: PREDNISONE
     Dosage: 25 MG, DAILY TAPER
     Route: 048
     Dates: start: 201705
  3. INFLECTRA [Suspect]
     Active Substance: INFLIXIMAB-DYYB
     Indication: CROHN^S DISEASE
     Dosage: 309 MG,  (EVERY 0, 2, 6 WEEKS,  THEN EVERY 8 WEEKS )
     Route: 042
     Dates: start: 20170707
  4. AMOXICILLIN. [Concomitant]
     Active Substance: AMOXICILLIN
     Dosage: 250 MG, TID
     Route: 048
     Dates: start: 20170629
  5. MOMETASONE FUROATE. [Concomitant]
     Active Substance: MOMETASONE FUROATE
     Indication: HYPERSENSITIVITY
     Dosage: UNK UNK, DAILY (QD)

REACTIONS (14)
  - Abdominal pain [Not Recovered/Not Resolved]
  - Animal scratch [Recovering/Resolving]
  - Haematochezia [Not Recovered/Not Resolved]
  - Abnormal faeces [Unknown]
  - Mucous stools [Not Recovered/Not Resolved]
  - Abdominal pain [Not Recovered/Not Resolved]
  - Dry throat [Recovered/Resolved]
  - Diarrhoea [Not Recovered/Not Resolved]
  - Paraesthesia [Unknown]
  - Gastrointestinal motility disorder [Unknown]
  - Malaise [Not Recovered/Not Resolved]
  - Headache [Recovered/Resolved]
  - Blood pressure fluctuation [Unknown]
  - Viral infection [Not Recovered/Not Resolved]

NARRATIVE: CASE EVENT DATE: 201707
